FAERS Safety Report 9462901 (Version 1)
Quarter: 2013Q3

REPORT INFORMATION
  Report Type: Spontaneous
  Country: FR (occurrence: None)
  Receive Date: 20130814
  Receipt Date: 20130814
  Transmission Date: 20140515
  Serious: Yes (Other)
  Sender: FDA-Public Use
  Company Number: 1837819

PATIENT
  Age: 53 Year
  Sex: Female

DRUGS (3)
  1. GEMCITABINE HYDROCHLORIDE [Suspect]
     Indication: ADENOCARCINOMA PANCREAS
     Dosage: 1 CYCLICAL
     Route: 042
     Dates: start: 20130411, end: 20130610
  2. METOCLOPRAMIDE [Concomitant]
  3. PREDNISOLONE [Concomitant]

REACTIONS (3)
  - Cholestasis [None]
  - Hepatitis acute [None]
  - Hepatocellular injury [None]
